FAERS Safety Report 8801937 (Version 2)
Quarter: 2012Q4

REPORT INFORMATION
  Report Type: 
  Country: LB (occurrence: LB)
  Receive Date: 20120921
  Receipt Date: 20121013
  Transmission Date: 20130627
  Serious: Yes (Other)
  Sender: FDA-Public Use
  Company Number: LB-ACCORD-014700

PATIENT
  Age: 54 Year
  Sex: Female

DRUGS (4)
  1. QUETIAPINE FUMARATE [Suspect]
     Indication: BIPOLAR DISORDER
  2. VALPROIC ACID [Concomitant]
     Indication: BIPOLAR DISORDER
  3. BROMAZEPAM [Concomitant]
     Indication: BIPOLAR DISORDER
  4. ZOLPIDEM [Concomitant]
     Indication: BIPOLAR DEPRESSION

REACTIONS (1)
  - Hypomania [Recovered/Resolved]
